FAERS Safety Report 21641901 (Version 1)
Quarter: 2022Q4

REPORT INFORMATION
  Report Type: Spontaneous
  Country: CN (occurrence: None)
  Receive Date: 20221125
  Receipt Date: 20221125
  Transmission Date: 20230113
  Serious: Yes (Hospitalization)
  Sender: FDA-Public Use
  Company Number: CN-ROCHE-3224672

PATIENT
  Age: 59 Year
  Sex: Male
  Weight: 82 kg

DRUGS (3)
  1. TECENTRIQ [Suspect]
     Active Substance: ATEZOLIZUMAB
     Indication: Small cell lung cancer
     Dosage: MOST RECENT DOSE WAS ADMINISTERED ON ON 24/OCT/2022,
     Route: 041
     Dates: start: 20220825
  2. ETOPOSIDE [Suspect]
     Active Substance: ETOPOSIDE
     Indication: Small cell lung cancer
     Dosage: MOST RECENT DOSE WAS ADMINISTERED ON ON 24/OCT/2022,
     Route: 041
     Dates: start: 20220825
  3. CARBOPLATIN [Suspect]
     Active Substance: CARBOPLATIN
     Indication: Small cell lung cancer
     Dosage: MOST RECENT DOSE WAS ADMINISTERED ON ON 24/OCT/2022,
     Route: 041
     Dates: start: 20220825

REACTIONS (1)
  - Myelosuppression [Recovering/Resolving]

NARRATIVE: CASE EVENT DATE: 20221114
